FAERS Safety Report 5464924-9 (Version None)
Quarter: 2007Q3

REPORT INFORMATION
  Report Type: 
  Country: None (occurrence: None)
  Receive Date: 20070921
  Receipt Date: 20070913
  Transmission Date: 20080115
  Serious: Yes (Death, Hospitalization)
  Sender: FDA-Public Use
  Company Number: ES-PFIZER INC-2007076980

PATIENT
  Age: 72 Year
  Sex: Female

DRUGS (3)
  1. CARDYL [Suspect]
     Indication: BLOOD TRIGLYCERIDES INCREASED
     Route: 048
     Dates: start: 20020101, end: 20020101
  2. CARDYL [Suspect]
     Indication: BLOOD CHOLESTEROL INCREASED
  3. ALLOPURINOL [Suspect]
     Indication: BLOOD URIC ACID INCREASED
     Route: 048
     Dates: start: 20020101, end: 20020101

REACTIONS (3)
  - BACTERIAL SEPSIS [None]
  - MULTI-ORGAN FAILURE [None]
  - TOXIC EPIDERMAL NECROLYSIS [None]
